FAERS Safety Report 7656151-1 (Version None)
Quarter: 2011Q3

REPORT INFORMATION
  Report Type: 
  Country: None (occurrence: None)
  Receive Date: 20110801
  Receipt Date: 20110716
  Transmission Date: 20111222
  Serious: Yes (Other)
  Sender: FDA-Public Use
  Company Number: AUR-APL-2011-04375

PATIENT
  Age: 61 Year
  Sex: Male
  Weight: 90.25 kg

DRUGS (6)
  1. DETROL [Concomitant]
  2. LORAZEPAM [Concomitant]
  3. LIPITOR [Concomitant]
  4. VENLAFAXINE [Suspect]
     Indication: PRODUCT USED FOR UNKNOWN INDICATION
     Dosage: 37.5 MG,
     Dates: start: 20110525, end: 20110602
  5. TRICOR (ADENOSINE) [Concomitant]
  6. COZAAR [Concomitant]

REACTIONS (3)
  - BIPOLAR DISORDER [None]
  - PSYCHOTIC DISORDER [None]
  - AGITATION [None]
